FAERS Safety Report 16751960 (Version 1)
Quarter: 2019Q3

REPORT INFORMATION
  Report Type: Spontaneous
  Country: FR (occurrence: FR)
  Receive Date: 20190828
  Receipt Date: 20190828
  Transmission Date: 20191005
  Serious: Yes (Hospitalization)
  Sender: FDA-Public Use
  Company Number: FR-TEVA-2019-FR-1097468

PATIENT
  Age: 53 Year
  Sex: Female

DRUGS (4)
  1. VELBE 10 MG, POUDRE POUR SOLUTION INJECTABLE I.V. [Suspect]
     Active Substance: VINBLASTINE SULFATE
     Indication: HODGKIN^S DISEASE STAGE II
     Dosage: 8.4 MILLIGRAM
     Route: 042
     Dates: start: 20190725, end: 20190725
  2. BLEOMYCINE BELLON 15 MG, POUDRE POUR SOLUTION INJECTABLE [Suspect]
     Active Substance: BLEOMYCIN SULFATE
     Indication: HODGKIN^S DISEASE STAGE II
     Dosage: 13.8 MILLIGRAM
     Route: 042
     Dates: start: 20190725, end: 20190725
  3. DOXORUBICINE [Suspect]
     Active Substance: DOXORUBICIN
     Indication: HODGKIN^S DISEASE STAGE II
     Dosage: 35 MILLIGRAM
     Route: 042
     Dates: start: 20190725, end: 20190725
  4. DACARBAZINE. [Suspect]
     Active Substance: DACARBAZINE
     Indication: HODGKIN^S DISEASE STAGE II
     Dosage: 520 MILLIGRAM
     Route: 042
     Dates: start: 20190725, end: 20190725

REACTIONS (3)
  - Rash maculo-papular [Recovered/Resolved]
  - Hypotension [Recovered/Resolved]
  - Pyrexia [Recovered/Resolved]

NARRATIVE: CASE EVENT DATE: 20190725
